FAERS Safety Report 7048337-4 (Version None)
Quarter: 2010Q4

REPORT INFORMATION
  Report Type: 
  Country: None (occurrence: None)
  Receive Date: 20101015
  Receipt Date: 20101006
  Transmission Date: 20110411
  Serious: Yes (Hospitalization)
  Sender: FDA-Public Use
  Company Number: JP-ROCHE-697567

PATIENT
  Sex: Female
  Weight: 47.7 kg

DRUGS (11)
  1. TOCILIZUMAB [Suspect]
     Indication: RHEUMATOID ARTHRITIS
     Route: 041
     Dates: start: 20090129, end: 20090129
  2. TOCILIZUMAB [Suspect]
     Route: 041
     Dates: start: 20090226, end: 20090226
  3. TOCILIZUMAB [Suspect]
     Route: 041
     Dates: start: 20090326, end: 20090326
  4. TOCILIZUMAB [Suspect]
     Route: 041
     Dates: start: 20090422, end: 20090422
  5. TOCILIZUMAB [Suspect]
     Route: 041
     Dates: start: 20090520, end: 20090520
  6. TOCILIZUMAB [Suspect]
     Route: 041
     Dates: start: 20090617, end: 20090617
  7. TOCILIZUMAB [Suspect]
     Route: 041
     Dates: start: 20090716, end: 20090716
  8. TOCILIZUMAB [Suspect]
     Route: 041
     Dates: start: 20090812
  9. RHEUMATREX [Concomitant]
     Route: 048
  10. VOLTAREN [Concomitant]
     Dosage: FORM:SUPPOSITORIAE RECTALE, DOSAGE ADJUSTED.
     Route: 061
     Dates: end: 20090211
  11. KETOPROFEN [Concomitant]
     Dosage: FORM:TAPE, DOSAGE ADJUSTED.
     Route: 061
     Dates: end: 20090211

REACTIONS (4)
  - BREAST CANCER [None]
  - CHEST PAIN [None]
  - INGROWING NAIL [None]
  - TINEA PEDIS [None]
